FAERS Safety Report 20221035 (Version 1)
Quarter: 2021Q4

REPORT INFORMATION
  Report Type: Other
  Country: US (occurrence: None)
  Receive Date: 20211223
  Receipt Date: 20211223
  Transmission Date: 20220304
  Serious: Yes (Other)
  Sender: FDA-Public Use
  Company Number: US-ROCHE-2980108

PATIENT
  Sex: Female

DRUGS (2)
  1. XELODA [Suspect]
     Active Substance: CAPECITABINE
     Indication: Breast cancer female
     Dosage: TAKE 3 TABLET(S) BY MOUTH TWICE A DAY 2 WEEK(S) ON, 1 WEEK(S) OFF
     Route: 048
     Dates: start: 20210915
  2. XELODA [Suspect]
     Active Substance: CAPECITABINE
     Indication: Breast cancer female

REACTIONS (3)
  - Road traffic accident [Unknown]
  - Back pain [Unknown]
  - Headache [Unknown]
